FAERS Safety Report 5465102-X (Version None)
Quarter: 2007Q3

REPORT INFORMATION
  Report Type: 
  Country: None (occurrence: None)
  Receive Date: 20070820
  Receipt Date: 20070622
  Transmission Date: 20080115
  Serious: No
  Sender: FDA-Public Use
  Company Number: TPA2007A01309

PATIENT
  Age: 58 Year
  Sex: Female
  Weight: 64.4108 kg

DRUGS (3)
  1. ROZEREM [Suspect]
     Indication: MIDDLE INSOMNIA
     Dosage: 8 MG, HS, PER ORAL
     Route: 048
     Dates: start: 20070612
  2. DOXEPIN (DOXEPIN) [Concomitant]
  3. VAGIFEM (ESTRADIOL) (TABLETS) [Concomitant]

REACTIONS (2)
  - POOR QUALITY SLEEP [None]
  - SOMNOLENCE [None]
